FAERS Safety Report 25714257 (Version 2)
Quarter: 2025Q3

REPORT INFORMATION
  Report Type: Report from Study
  Country: EG (occurrence: EG)
  Receive Date: 20250822
  Receipt Date: 20250917
  Transmission Date: 20251021
  Serious: Yes (Hospitalization)
  Sender: ABBVIE
  Company Number: EG-ABBVIE-6421136

PATIENT
  Age: 27 Year
  Sex: Female

DRUGS (2)
  1. RINVOQ [Suspect]
     Active Substance: UPADACITINIB
     Indication: Psoriatic arthropathy
     Dosage: 1 TABLET?LAST ADMINISTRATION DATE 2025?FORM STRENGTH: 15 MILLIGRAM
     Route: 048
     Dates: start: 20250613, end: 202508
  2. RINVOQ [Suspect]
     Active Substance: UPADACITINIB
     Indication: Psoriatic arthropathy
     Dosage: DOSE INCREASED?FORM STRENGTH: 15 MILLIGRAM
     Route: 048
     Dates: start: 20250820

REACTIONS (8)
  - Colitis [Recovered/Resolved]
  - Haematochezia [Recovered/Resolved]
  - Hypertension [Recovered/Resolved]
  - Pain [Recovered/Resolved]
  - Gastritis [Recovered/Resolved]
  - Fear [Unknown]
  - Hospitalisation [Recovered/Resolved]
  - Stress [Unknown]

NARRATIVE: CASE EVENT DATE: 20250101
